FAERS Safety Report 22972526 (Version 2)
Quarter: 2023Q4

REPORT INFORMATION
  Report Type: Report from Study
  Country: US (occurrence: US)
  Receive Date: 20230922
  Receipt Date: 20231006
  Transmission Date: 20240110
  Serious: Yes (Other)
  Sender: FDA-Public Use
  Company Number: US-Vifor (International) Inc.-VIT-2023-07029

PATIENT
  Age: 72 Year
  Sex: Male

DRUGS (1)
  1. VELTASSA [Suspect]
     Active Substance: PATIROMER
     Indication: Hyperkalaemia

REACTIONS (6)
  - Pharyngeal operation [Unknown]
  - Hemiplegia [Unknown]
  - Toe amputation [Unknown]
  - Sensory loss [Unknown]
  - Product taste abnormal [Unknown]
  - Cerebrovascular accident [Unknown]

NARRATIVE: CASE EVENT DATE: 20210101
